FAERS Safety Report 15699981 (Version 5)
Quarter: 2019Q2

REPORT INFORMATION
  Report Type: Spontaneous
  Country: TW (occurrence: TW)
  Receive Date: 20181207
  Receipt Date: 20190405
  Transmission Date: 20190711
  Serious: Yes (Other)
  Sender: FDA-Public Use
  Company Number: TW-PFIZER INC-2018500291

PATIENT
  Age: 59 Year
  Sex: Male

DRUGS (2)
  1. SUTENT [Suspect]
     Active Substance: SUNITINIB MALATE
     Indication: RENAL CELL CARCINOMA
     Dosage: 4 DF (50 MG), CYCLIC(QD, FOUR WEEKS ON AND TWO WEEKS OFF)
     Route: 048
     Dates: start: 20181018, end: 20181126
  2. SUTENT [Suspect]
     Active Substance: SUNITINIB MALATE
     Dosage: 3 DF(37.5 MG), QD TWO WEEKS ON AND ONE WEEK OFF
     Route: 048
     Dates: start: 20181127

REACTIONS (9)
  - Palmar-plantar erythrodysaesthesia syndrome [Recovering/Resolving]
  - Skin exfoliation [Recovering/Resolving]
  - Diarrhoea [Recovering/Resolving]
  - Hypogeusia [Recovering/Resolving]
  - Glossodynia [Not Recovered/Not Resolved]
  - Anal injury [Not Recovered/Not Resolved]
  - Oropharyngeal pain [Recovering/Resolving]
  - Decreased appetite [Recovering/Resolving]
  - Dry mouth [Not Recovered/Not Resolved]

NARRATIVE: CASE EVENT DATE: 2018
